FAERS Safety Report 6387901-2 (Version None)
Quarter: 2009Q4

REPORT INFORMATION
  Report Type: 
  Country: None (occurrence: None)
  Receive Date: 20091001
  Receipt Date: 20091001
  Transmission Date: 20100525
  Serious: Yes (Hospitalization)
  Sender: FDA-Public Use
  Company Number: None

PATIENT
  Age: 52 Year
  Sex: Male
  Weight: 114.4 kg

DRUGS (3)
  1. MORPHINE [Suspect]
     Indication: PAIN
     Dosage: INFILTRATED 9/10 REFILL IT
     Route: 038
     Dates: start: 20090910
  2. CLONIDINE [Suspect]
     Indication: PAIN
     Dosage: INFILTRATED 9/10 REFILL IT
     Route: 038
     Dates: start: 20090910
  3. ZANTAC [Concomitant]

REACTIONS (6)
  - HAEMORRHAGE [None]
  - HYPOTENSION [None]
  - INFUSION SITE PRURITUS [None]
  - INFUSION SITE SWELLING [None]
  - LETHARGY [None]
  - MEDICATION ERROR [None]
